FAERS Safety Report 22248778 (Version 2)
Quarter: 2023Q2

REPORT INFORMATION
  Report Type: Report from Study
  Country: US (occurrence: US)
  Receive Date: 20230425
  Receipt Date: 20230601
  Transmission Date: 20230722
  Serious: Yes (Other)
  Sender: FDA-Public Use
  Company Number: US-MYLANLABS-2023M1042395

PATIENT
  Age: 39 Year
  Sex: Male

DRUGS (1)
  1. CLOZAPINE [Suspect]
     Active Substance: CLOZAPINE
     Indication: Product used for unknown indication
     Dosage: 100 MILLIGRAM, BID(TWICE DAILY)
     Route: 048

REACTIONS (4)
  - Craniocerebral injury [Unknown]
  - Central nervous system lesion [Unknown]
  - Abnormal behaviour [Unknown]
  - Agitation [Unknown]

NARRATIVE: CASE EVENT DATE: 20221215
